FAERS Safety Report 9308098 (Version 1)
Quarter: 2013Q2

REPORT INFORMATION
  Report Type: Report from Study
  Country: US (occurrence: US)
  Receive Date: 20130524
  Receipt Date: 20130524
  Transmission Date: 20140414
  Serious: Yes (Hospitalization, Other)
  Sender: FDA-Public Use
  Company Number: US-ABBOTT-13P-163-1091366-00

PATIENT
  Age: 38 Year
  Sex: Female

DRUGS (11)
  1. HUMIRA [Suspect]
     Indication: CROHN^S DISEASE
     Route: 058
     Dates: start: 201302, end: 20130322
  2. HUMIRA [Suspect]
     Route: 058
     Dates: start: 20130419, end: 20130419
  3. HUMIRA [Suspect]
     Route: 058
     Dates: start: 20130503, end: 20130503
  4. FLONASE [Concomitant]
     Indication: SEASONAL ALLERGY
     Dosage: IN SPRING AND FALL WHEN ALLERGIES START UP
  5. BIRTH CONTROL PILL [Concomitant]
     Indication: ORAL CONTRACEPTION
  6. BLOOD PRESSURE PILL [Concomitant]
     Indication: BLOOD PRESSURE ABNORMAL
  7. ANXIETY/DEPRESSION PILL [Concomitant]
     Indication: ANXIETY
  8. ANXIETY/DEPRESSION PILL [Concomitant]
     Indication: DEPRESSION
  9. MULTIVITAMIN [Concomitant]
     Indication: PRODUCT USED FOR UNKNOWN INDICATION
  10. CALCIUM [Concomitant]
     Indication: MINERAL SUPPLEMENTATION
  11. MIGRAINE MEDICATION [Concomitant]
     Indication: MIGRAINE
     Dosage: ONCE EVERY MONTH OR TWO

REACTIONS (3)
  - Intestinal stenosis [Recovered/Resolved]
  - Hypophagia [Not Recovered/Not Resolved]
  - Incorrect dose administered [Unknown]
